FAERS Safety Report 8145262-2 (Version None)
Quarter: 2012Q1

REPORT INFORMATION
  Report Type: 
  Country: None (occurrence: None)
  Receive Date: 20120217
  Receipt Date: 20120210
  Transmission Date: 20120608
  Serious: Yes (Other)
  Sender: FDA-Public Use
  Company Number: PHHY2012FR011690

PATIENT
  Age: 50 Year
  Sex: Male

DRUGS (8)
  1. ENALAPRIL [Concomitant]
  2. HEPARIN [Concomitant]
  3. SIMVASTATIN [Suspect]
     Dosage: 40 MG/DAY
  4. METOPROLOL TARTRATE [Concomitant]
  5. ASPIRIN [Concomitant]
  6. LAMOTRIGINE [Concomitant]
  7. CLOPIDOGREL [Interacting]
     Dosage: 75 MG/DAY
     Route: 048
  8. CLOPIDOGREL [Interacting]
     Dosage: 300 MG
     Route: 048

REACTIONS (9)
  - THROMBOTIC THROMBOCYTOPENIC PURPURA [None]
  - THROMBOCYTOPENIA [None]
  - RENAL FAILURE ACUTE [None]
  - PARAESTHESIA ORAL [None]
  - DRUG INTERACTION [None]
  - HAEMOLYSIS [None]
  - DELIRIUM [None]
  - THROMBOTIC MICROANGIOPATHY [None]
  - LIVIDITY [None]
